FAERS Safety Report 8194020-1 (Version None)
Quarter: 2012Q1

REPORT INFORMATION
  Report Type: 
  Country: None (occurrence: None)
  Receive Date: 20120308
  Receipt Date: 20120307
  Transmission Date: 20120608
  Serious: Yes (Disabling)
  Sender: FDA-Public Use
  Company Number: DE-MERCK-1202DEU00038

PATIENT
  Age: 77 Year
  Sex: Male
  Weight: 77 kg

DRUGS (5)
  1. VYTORIN [Suspect]
     Indication: BLOOD CHOLESTEROL INCREASED
     Route: 048
  2. NITRENDIPINE [Concomitant]
     Route: 065
  3. VALSARTAN [Concomitant]
     Route: 065
  4. GLIMEPIRIDE [Concomitant]
     Route: 065
  5. HYDROCHLOROTHIAZIDE AND VALSARTAN [Concomitant]
     Route: 065

REACTIONS (1)
  - SEXUAL DYSFUNCTION [None]
